FAERS Safety Report 5136795-1 (Version None)
Quarter: 2006Q4

REPORT INFORMATION
  Report Type: 
  Country: None (occurrence: None)
  Receive Date: 20061023
  Receipt Date: 20061006
  Transmission Date: 20070319
  Serious: Yes (Life-Threatening)
  Sender: FDA-Public Use
  Company Number: DSA_81725_2006

PATIENT

DRUGS (1)
  1. XYREM [Suspect]
     Dosage: DF, PO
     Route: 048

REACTIONS (1)
  - RESPIRATORY ARREST [None]
